FAERS Safety Report 7306493-4 (Version None)
Quarter: 2011Q1

REPORT INFORMATION
  Report Type: 
  Country: None (occurrence: None)
  Receive Date: 20110210
  Receipt Date: 20110128
  Transmission Date: 20110831
  Serious: Yes (Other)
  Sender: FDA-Public Use
  Company Number: 2011000516

PATIENT
  Age: 58 Year
  Sex: Male

DRUGS (1)
  1. TARCEVA [Suspect]
     Indication: LUNG NEOPLASM
     Dosage: (150 MG,QD), ORAL; (100 MG,QD), ORAL
     Route: 048
     Dates: start: 20110131

REACTIONS (2)
  - RASH [None]
  - CHEST PAIN [None]
